FAERS Safety Report 9548375 (Version 1)
Quarter: 2013Q3

REPORT INFORMATION
  Report Type: Spontaneous
  Country: DE (occurrence: DE)
  Receive Date: 20130924
  Receipt Date: 20130924
  Transmission Date: 20140515
  Serious: Yes (Death, Other)
  Sender: FDA-Public Use
  Company Number: DE-BAYER-2013-110781

PATIENT
  Age: 54 Year
  Sex: Male

DRUGS (4)
  1. CIPROFLOXACIN [Suspect]
     Indication: PNEUMONIA
     Dosage: 250 MG, BID
  2. CIPROFLOXACIN [Suspect]
     Indication: URINARY TRACT INFECTION
  3. IMIPENEM [Concomitant]
     Dosage: 500 MG, TID
  4. CILASTATIN [Concomitant]
     Dosage: 500 MG, TID

REACTIONS (6)
  - Urosepsis [Fatal]
  - Septic shock [Fatal]
  - Respiratory failure [Fatal]
  - Burkholderia infection [None]
  - Acute respiratory distress syndrome [None]
  - Underdose [None]
